FAERS Safety Report 9167633 (Version 1)
Quarter: 2013Q1

REPORT INFORMATION
  Report Type: Spontaneous
  Country: US (occurrence: None)
  Receive Date: 20130304
  Receipt Date: 20130304
  Transmission Date: 20140127
  Serious: No
  Sender: FDA-Public Use
  Company Number: VAL_01432_2013

PATIENT
  Age: 54 Year
  Sex: Male

DRUGS (2)
  1. METOPROLOL [Suspect]
     Indication: PRODUCT USED FOR UNKNOWN INDICATION
  2. DILTIAZEM CD [Concomitant]

REACTIONS (4)
  - Ventricular tachycardia [None]
  - Dizziness [None]
  - Presyncope [None]
  - Ventricular extrasystoles [None]
